FAERS Safety Report 13556278 (Version 2)
Quarter: 2018Q2

REPORT INFORMATION
  Report Type: Spontaneous
  Country: US (occurrence: US)
  Receive Date: 20170517
  Receipt Date: 20180515
  Transmission Date: 20180711
  Serious: No
  Sender: FDA-Public Use
  Company Number: US-SA-2017SA007609

PATIENT
  Age: 52 Year
  Sex: Female
  Weight: 107.48 kg

DRUGS (15)
  1. HYDROCHLOROTHIAZIDE WITH TRIAMTERENE [Concomitant]
     Active Substance: HYDROCHLOROTHIAZIDE\TRIAMTERENE
     Indication: BLOOD PRESSURE MEASUREMENT
     Dosage: 1 TABLET ORAL DAILY AS NEEDED FOR SWELLING OR ?ELEVATED BP FOR 90 DAYS
     Route: 048
     Dates: start: 20180126
  2. CLONAZEPAM. [Concomitant]
     Active Substance: CLONAZEPAM
     Indication: RESTLESS LEGS SYNDROME
     Dosage: 1-2 TABLETS ORAL AT BEDTIME TO PREVENT RESTLESS ?LEGS FOR 90 DAYS
     Route: 048
     Dates: start: 20180126
  3. DICLOFENAC SODIUM. [Concomitant]
     Active Substance: DICLOFENAC SODIUM
     Indication: ARTHRALGIA
     Dosage: APPLY 4 GRAMS (TRANSDERMAL) TO LEFT KNEE UP ?TO Q.I.D. P.R.N. KNEE PAIN FOR 30 DAYS
     Route: 062
     Dates: start: 20170103
  4. METOPROLOL. [Concomitant]
     Active Substance: METOPROLOL
     Indication: HYPERTENSION
     Dosage: 1 TABLET ORAL DAILY FOR BLOOD PRESSURE FOR 90 ?DAYS
     Route: 048
     Dates: start: 20180126
  5. ACUILIX [Concomitant]
     Active Substance: HYDROCHLOROTHIAZIDE\QUINAPRIL HYDROCHLORIDE
     Indication: BLOOD PRESSURE MEASUREMENT
     Dosage: 1 TABLET ORAL DAILY FOR BLOOD PRESSURE FOR 90 ?DAYS
     Route: 048
     Dates: start: 20180126
  6. SOLOSTAR [Suspect]
     Active Substance: DEVICE
     Indication: DIABETES MELLITUS
     Dates: start: 20161202, end: 20170103
  7. MINOCYCLINE [Concomitant]
     Active Substance: MINOCYCLINE\MINOCYCLINE HYDROCHLORIDE
     Indication: FOLLICULITIS
     Route: 065
  8. OMEPRAZOLE. [Concomitant]
     Active Substance: OMEPRAZOLE
     Indication: GASTROOESOPHAGEAL REFLUX DISEASE
     Dosage: 1CAPSULE ORAL DAILY TO REDUCE ACID IN ?STOMACH FOR 90 DAYS
     Route: 048
     Dates: start: 20180126
  9. METOPROLOL. [Concomitant]
     Active Substance: METOPROLOL
     Indication: HYPERTENSION
     Route: 065
  10. TOUJEO [Suspect]
     Active Substance: INSULIN GLARGINE
     Indication: TYPE 2 DIABETES MELLITUS
     Dosage: DOSE:30 UNIT(S)
     Route: 058
     Dates: start: 20161202, end: 20170103
  11. MINOCYCLINE [Concomitant]
     Active Substance: MINOCYCLINE\MINOCYCLINE HYDROCHLORIDE
     Indication: FOLLICULITIS
     Dosage: 1TABLET Q.D. REGULARLY (ANTIBIOTIC TO HELP ?PREVENT SKIN INFECTIONS) FOR 90 DAYS
     Route: 048
     Dates: start: 20180126
  12. OMEPRAZOLE. [Concomitant]
     Active Substance: OMEPRAZOLE
     Indication: GASTROOESOPHAGEAL REFLUX DISEASE
     Route: 065
  13. ERGOCALCIFEROL. [Concomitant]
     Active Substance: ERGOCALCIFEROL
     Dosage: 1 CAPSULE (ORAL) TWO TIMES A WEEK TO ?REPLACE VITAMIN D FOR 30 DAYS
     Route: 048
     Dates: start: 20160225
  14. ASPIRIN W/BUTALBITAL/CAFFEINE [Concomitant]
     Indication: HEADACHE
     Dosage: 1-2 TABLET (ORAL) EVERY 4 TO 6 HRS PRN HEADACHE ?TABLET  (MAX IS 6 PER DAY) FOR 5 DAYS
     Route: 048
     Dates: start: 20150828
  15. HYDROCHLOROTHIAZIDE WITH TRIAMTERENE [Concomitant]
     Active Substance: HYDROCHLOROTHIAZIDE\TRIAMTERENE
     Indication: SWELLING
     Dosage: 1 TABLET ORAL DAILY AS NEEDED FOR SWELLING OR ?ELEVATED BP FOR 90 DAYS
     Route: 048
     Dates: start: 20180126

REACTIONS (4)
  - Injection site reaction [Unknown]
  - Injection site irritation [Recovered/Resolved]
  - Injection site erythema [Recovered/Resolved]
  - Injection site discolouration [Unknown]

NARRATIVE: CASE EVENT DATE: 20161210
